FAERS Safety Report 19087368 (Version 1)
Quarter: 2021Q2

REPORT INFORMATION
  Report Type: Spontaneous
  Country: SI (occurrence: SI)
  Receive Date: 20210402
  Receipt Date: 20210402
  Transmission Date: 20210717
  Serious: Yes (Other)
  Sender: FDA-Public Use
  Company Number: SI-NOVOPROD-798958

PATIENT
  Age: 72 Year
  Sex: Male

DRUGS (2)
  1. NOVOMIX 30 FLEXPEN [Suspect]
     Active Substance: INSULIN ASPART
     Indication: DIABETES MELLITUS
     Dosage: 30?18 UNITS
     Route: 065
  2. NOVOMIX 30 FLEXPEN [Suspect]
     Active Substance: INSULIN ASPART
     Dosage: 20?18 UNITS
     Route: 065

REACTIONS (4)
  - Loss of consciousness [Unknown]
  - Head injury [Unknown]
  - Weight decreased [Unknown]
  - Hypoglycaemia unawareness [Unknown]
